FAERS Safety Report 7099054-6 (Version None)
Quarter: 2010Q4

REPORT INFORMATION
  Report Type: 
  Country: None (occurrence: None)
  Receive Date: 20101112
  Receipt Date: 20101109
  Transmission Date: 20110411
  Serious: Yes (Hospitalization, Other)
  Sender: FDA-Public Use
  Company Number: IT-BRISTOL-MYERS SQUIBB COMPANY-15376551

PATIENT
  Age: 78 Year
  Sex: Female

DRUGS (8)
  1. COUMADIN [Suspect]
     Indication: ATRIAL FIBRILLATION
     Dosage: 1 DF= 1 POSOLOGIC UNIT
     Dates: start: 20090101, end: 20100917
  2. GLUCOPHAGE [Concomitant]
     Route: 048
  3. HUMULIN R [Concomitant]
     Dosage: 100 U/ML AT THE DOSAGE OF 36 U
     Route: 058
  4. LANOXIN [Concomitant]
     Dosage: 1DF=1 POSOLOGIC UNIT; 0.125 MG ORAL TABS
     Route: 048
  5. LASIX [Concomitant]
     Route: 048
  6. ANTRA [Concomitant]
     Dosage: 20 MG MODIFIED RELEASE ORAL CAPS.1DF=1 POSOLOGIC UNIT
     Route: 048
  7. DILATREND [Concomitant]
     Dosage: 1DF=1,5 POSOLOGIC UNIT; 6.25 MG ORAL TABS
     Route: 048
  8. HUMULIN R [Concomitant]
     Dosage: 1DF=22 POSOLOGIC UNITS; 30/70 100 U/ML
     Route: 058

REACTIONS (2)
  - ANAEMIA [None]
  - HAEMORRHOIDS [None]
